FAERS Safety Report 8087217-2 (Version None)
Quarter: 2012Q1

REPORT INFORMATION
  Report Type: 
  Country: None (occurrence: None)
  Receive Date: 20120128
  Receipt Date: 20110427
  Transmission Date: 20120608
  Serious: No
  Sender: FDA-Public Use
  Company Number: US-ABBOTT-11P-163-0722046-00

PATIENT
  Age: 77 Year
  Sex: Female

DRUGS (6)
  1. DIGOXIN [Concomitant]
     Indication: CARDIAC DISORDER
  2. HUMIRA [Suspect]
     Indication: CROHN'S DISEASE
     Route: 058
     Dates: start: 20110411, end: 20110411
  3. HUMIRA [Suspect]
     Route: 058
     Dates: start: 20110425, end: 20110425
  4. HUMIRA [Suspect]
  5. ASPIRIN [Concomitant]
     Indication: CARDIAC DISORDER
  6. SIMVASTATIN [Concomitant]
     Indication: BLOOD CHOLESTEROL

REACTIONS (2)
  - GASTROINTESTINAL HAEMORRHAGE [None]
  - ARTHRALGIA [None]
